FAERS Safety Report 8300873-6 (Version None)
Quarter: 2012Q2

REPORT INFORMATION
  Report Type: 
  Country: None (occurrence: None)
  Receive Date: 20120420
  Receipt Date: 20120405
  Transmission Date: 20120825
  Serious: Yes (Other)
  Sender: FDA-Public Use
  Company Number: US-ENDO PHARMACEUTICALS INC.-OPCR20120119

PATIENT
  Sex: Female

DRUGS (4)
  1. OPANA ER [Suspect]
     Indication: PAIN
     Route: 048
     Dates: start: 20120301
  2. TRAMADOL HCL [Concomitant]
     Indication: ANXIETY
  3. XANAX [Concomitant]
     Indication: ANXIETY
  4. OXYCODONE HCL [Concomitant]
     Indication: BREAKTHROUGH PAIN
     Route: 048

REACTIONS (3)
  - DRUG INEFFECTIVE [None]
  - DIARRHOEA [None]
  - INTENTIONAL DRUG MISUSE [None]
